FAERS Safety Report 5657967-3 (Version None)
Quarter: 2008Q1

REPORT INFORMATION
  Report Type: 
  Country: None (occurrence: None)
  Receive Date: 20080310
  Receipt Date: 20080305
  Transmission Date: 20080703
  Serious: Yes (Life-Threatening, Hospitalization)
  Sender: FDA-Public Use
  Company Number: PHHY2008US02290

PATIENT

DRUGS (1)
  1. CLOZARIL [Suspect]

REACTIONS (2)
  - HYPOTENSION [None]
  - RESPIRATORY FAILURE [None]
